FAERS Safety Report 4299105-8 (Version None)
Quarter: 2004Q1

REPORT INFORMATION
  Report Type: 
  Country: None (occurrence: None)
  Receive Date: 20040217
  Receipt Date: 20040205
  Transmission Date: 20041129
  Serious: Yes (Other)
  Sender: FDA-Public Use
  Company Number: HQWYE850206FEB04

PATIENT
  Age: 10 Year
  Sex: Male
  Weight: 54.48 kg

DRUGS (2)
  1. EFFEXOR XR [Suspect]
     Indication: DEPRESSION
     Dosage: ^ONE DAILY (STRENGTH UNKNOWN)^, ORAL
     Route: 048
     Dates: start: 20010101, end: 20030101
  2. ADDERALL [Concomitant]

REACTIONS (5)
  - ALOPECIA [None]
  - INSOMNIA [None]
  - IRRITABILITY [None]
  - MOOD ALTERED [None]
  - SUICIDAL IDEATION [None]
